FAERS Safety Report 9915641 (Version 1)
Quarter: 2014Q1

REPORT INFORMATION
  Report Type: Spontaneous
  Country: IT (occurrence: None)
  Receive Date: 20140218
  Receipt Date: 20140218
  Transmission Date: 20141002
  Serious: Yes (Other)
  Sender: FDA-Public Use
  Company Number: FK201400440

PATIENT
  Age: 47 Year
  Sex: Female
  Weight: 56 kg

DRUGS (1)
  1. PACLITAXEL [Suspect]
     Indication: LUNG ADENOCARCINOMA
     Dosage: 175 MG, CYCLICAL, INTRAVENOUS (NOT OTHERWISE SPECIFIED)
     Route: 042
     Dates: start: 20140103, end: 20140124

REACTIONS (7)
  - Cyanosis [None]
  - Generalised erythema [None]
  - Hyperhidrosis [None]
  - Dyspnoea [None]
  - Malaise [None]
  - Flushing [None]
  - Wheezing [None]
